FAERS Safety Report 6427814-0 (Version None)
Quarter: 2009Q4

REPORT INFORMATION
  Report Type: 
  Country: None (occurrence: None)
  Receive Date: 20091105
  Receipt Date: 20091027
  Transmission Date: 20100525
  Serious: Yes (Other)
  Sender: FDA-Public Use
  Company Number: CV-ASTRAZENECA-2009SE22984

PATIENT
  Age: 0 Week
  Sex: Male

DRUGS (2)
  1. ROSUVASTATIN [Suspect]
     Route: 064
  2. TELMISARTAN [Suspect]
     Route: 064

REACTIONS (1)
  - CONGENITAL ANOMALY [None]
